FAERS Safety Report 23936323 (Version 1)
Quarter: 2024Q2

REPORT INFORMATION
  Report Type: Spontaneous
  Country: US (occurrence: None)
  Receive Date: 20240603
  Receipt Date: 20240603
  Transmission Date: 20240716
  Serious: No
  Sender: FDA-Public Use
  Company Number: None

PATIENT
  Sex: Male

DRUGS (6)
  1. BIKTARVY [Suspect]
     Active Substance: BICTEGRAVIR SODIUM\EMTRICITABINE\TENOFOVIR ALAFENAMIDE FUMARATE
     Indication: HIV infection
     Dosage: OTHER QUANTITY : 1 TABLET;?FREQUENCY : DAILY;?
     Route: 048
     Dates: start: 202112
  2. ISENTREES [Concomitant]
  3. DARUNAVIR [Concomitant]
     Active Substance: DARUNAVIR
  4. ETRAVIRINE [Concomitant]
     Active Substance: ETRAVIRINE
  5. MYTESIDR [Concomitant]
  6. RUKOBIA ER [Concomitant]

REACTIONS (1)
  - Emergency care [None]
